FAERS Safety Report 20175387 (Version 1)
Quarter: 2021Q4

REPORT INFORMATION
  Report Type: Spontaneous
  Country: CN (occurrence: CN)
  Receive Date: 20211213
  Receipt Date: 20211213
  Transmission Date: 20220303
  Serious: Yes (Other)
  Sender: FDA-Public Use
  Company Number: CN-BAXTER-2021BAX039090

PATIENT
  Age: 66 Year
  Sex: Female

DRUGS (3)
  1. CYCLOPHOSPHAMIDE [Suspect]
     Active Substance: CYCLOPHOSPHAMIDE
     Indication: Thyroid cancer
     Dosage: ON DAY 1
     Route: 042
  2. VINCRISTINE [Suspect]
     Active Substance: VINCRISTINE
     Indication: Thyroid cancer
     Dosage: MAXIMAL DOSE OF 2 MG ON DAY 1
     Route: 042
  3. PREDNISONE [Suspect]
     Active Substance: PREDNISONE
     Indication: Thyroid cancer
     Dosage: PER DAY ON DAYS 1 AND 5
     Route: 048

REACTIONS (1)
  - Tracheo-oesophageal fistula [Unknown]
